FAERS Safety Report 20973981 (Version 3)
Quarter: 2022Q3

REPORT INFORMATION
  Report Type: Report from Study
  Country: US (occurrence: US)
  Receive Date: 20220617
  Receipt Date: 20220725
  Transmission Date: 20221027
  Serious: Yes (Other)
  Sender: FDA-Public Use
  Company Number: US-ABBVIE-22K-163-4434897-00

PATIENT
  Sex: Male
  Weight: 59.928 kg

DRUGS (11)
  1. HUMIRA [Suspect]
     Active Substance: ADALIMUMAB
     Indication: Psoriasis
     Route: 058
     Dates: end: 20220606
  2. HUMIRA [Suspect]
     Active Substance: ADALIMUMAB
     Indication: Rheumatoid arthritis
  3. HUMIRA [Suspect]
     Active Substance: ADALIMUMAB
     Indication: Hidradenitis
  4. JANSSEN COVID-19 VACCINE [Suspect]
     Active Substance: AD26.COV2.S
     Indication: COVID-19 immunisation
     Dosage: FIRST DOSE
     Route: 030
  5. JANSSEN COVID-19 VACCINE [Suspect]
     Active Substance: AD26.COV2.S
     Dosage: SECOND DOSE
     Route: 030
     Dates: start: 20211029, end: 20211029
  6. ELIQUIS [Concomitant]
     Active Substance: APIXABAN
     Indication: Product used for unknown indication
  7. WELLBUTRIN [Concomitant]
     Active Substance: BUPROPION HYDROCHLORIDE
     Indication: Product used for unknown indication
  8. CYMBALTA [Concomitant]
     Active Substance: DULOXETINE HYDROCHLORIDE
     Indication: Product used for unknown indication
  9. TESTOSTERONE [Concomitant]
     Active Substance: TESTOSTERONE
     Indication: Product used for unknown indication
  10. MODERNA COVID-19 VACCINE [Concomitant]
     Active Substance: ELASOMERAN
     Indication: COVID-19 immunisation
     Dosage: FIRST SHOT
     Route: 030
  11. MODERNA COVID-19 VACCINE [Concomitant]
     Active Substance: ELASOMERAN
     Dosage: SECOND SHOT
     Route: 030
     Dates: start: 20220404, end: 20220404

REACTIONS (13)
  - Systemic lupus erythematosus [Not Recovered/Not Resolved]
  - Blood viscosity decreased [Not Recovered/Not Resolved]
  - Arthropod bite [Unknown]
  - Fear of falling [Not Recovered/Not Resolved]
  - Therapeutic product effect incomplete [Unknown]
  - Haemorrhagic diathesis [Not Recovered/Not Resolved]
  - Somnolence [Unknown]
  - Depression [Unknown]
  - Fibromyalgia [Not Recovered/Not Resolved]
  - Artificial crown procedure [Unknown]
  - Feeling of despair [Unknown]
  - Sinus headache [Unknown]
  - Drug specific antibody present [Unknown]

NARRATIVE: CASE EVENT DATE: 20220101
